FAERS Safety Report 23662628 (Version 1)
Quarter: 2024Q1

REPORT INFORMATION
  Report Type: Spontaneous
  Country: US (occurrence: US)
  Receive Date: 20240322
  Receipt Date: 20240322
  Transmission Date: 20240409
  Serious: Yes (Other)
  Sender: FDA-Public Use
  Company Number: US-ABBVIE-5687569

PATIENT
  Age: 75 Year
  Sex: Male
  Weight: 102 kg

DRUGS (2)
  1. VENETOCLAX [Suspect]
     Active Substance: VENETOCLAX
     Indication: Acute myeloid leukaemia
     Dosage: FREQUENCY TEXT: QD?DURATION TEXT: Q28 DAYS ON DAYS 1-6
     Route: 048
     Dates: start: 20220711
  2. DECITABINE [Concomitant]
     Active Substance: DECITABINE
     Indication: Acute myeloid leukaemia
     Dosage: 20MG/M2?FREQUENCY TEXT: Q28DAYS
     Route: 042
     Dates: start: 20220711

REACTIONS (1)
  - Asthenia [Unknown]

NARRATIVE: CASE EVENT DATE: 20231028
